FAERS Safety Report 5495324-3 (Version None)
Quarter: 2007Q4

REPORT INFORMATION
  Report Type: 
  Country: None (occurrence: None)
  Receive Date: 20071024
  Receipt Date: 20071016
  Transmission Date: 20080405
  Serious: Yes (Hospitalization, Disabling)
  Sender: FDA-Public Use
  Company Number: US-MERCK-0708USA01962

PATIENT
  Age: 41 Year
  Sex: Male
  Weight: 134 kg

DRUGS (5)
  1. VYTORIN [Suspect]
     Indication: HYPERLIPIDAEMIA
     Route: 048
     Dates: start: 20070104, end: 20070308
  2. VYTORIN [Suspect]
     Route: 048
     Dates: start: 20070308, end: 20070515
  3. PRINIVIL [Concomitant]
     Route: 048
     Dates: start: 20071011
  4. ATENOLOL [Concomitant]
     Route: 048
     Dates: start: 20070802
  5. NIFEDIPINE [Concomitant]
     Route: 048

REACTIONS (5)
  - BLOOD CREATINE PHOSPHOKINASE INCREASED [None]
  - DRUG INEFFECTIVE [None]
  - FIBROMYALGIA [None]
  - MYALGIA [None]
  - NON-CARDIAC CHEST PAIN [None]
